FAERS Safety Report 7327756-2 (Version None)
Quarter: 2011Q1

REPORT INFORMATION
  Report Type: 
  Country: None (occurrence: None)
  Receive Date: 20110303
  Receipt Date: 20110215
  Transmission Date: 20110831
  Serious: Yes (Other)
  Sender: FDA-Public Use
  Company Number: US-PFIZER INC-2010156896

PATIENT
  Sex: Male

DRUGS (1)
  1. PACERONE [Suspect]
     Dosage: 200 MG, UNK

REACTIONS (1)
  - THYROTOXIC CRISIS [None]
